FAERS Safety Report 6957002-0 (Version None)
Quarter: 2010Q3

REPORT INFORMATION
  Report Type: 
  Country: None (occurrence: None)
  Receive Date: 20100827
  Receipt Date: 20100827
  Transmission Date: 20110219
  Serious: Yes (Other)
  Sender: FDA-Public Use
  Company Number: None

PATIENT
  Age: 50 Year
  Sex: Male
  Weight: 77.1115 kg

DRUGS (4)
  1. PROPOFOL [Suspect]
     Indication: SEDATIVE THERAPY
     Dates: start: 20100802, end: 20100823
  2. PROPOFOL [Suspect]
  3. DIPRIVAN [Suspect]
  4. DIPRIVAN [Suspect]

REACTIONS (4)
  - CHILLS [None]
  - NAUSEA [None]
  - PYREXIA [None]
  - VOMITING [None]
